FAERS Safety Report 4608831-X (Version None)
Quarter: 2005Q1

REPORT INFORMATION
  Report Type: 
  Country: None (occurrence: None)
  Receive Date: 20050315
  Receipt Date: 20050314
  Transmission Date: 20050727
  Serious: Yes (Hospitalization)
  Sender: FDA-Public Use
  Company Number: DEPFP-S-20050009

PATIENT
  Age: 58 Year
  Sex: Male

DRUGS (8)
  1. NAVELBINE [Suspect]
     Indication: NON-SMALL CELL LUNG CANCER
     Route: 042
     Dates: start: 20031031, end: 20031128
  2. NAVELBINE [Suspect]
     Route: 042
     Dates: start: 20031215, end: 20040127
  3. NAVELBINE [Suspect]
     Route: 042
     Dates: start: 20040323, end: 20040406
  4. CISPLATIN [Concomitant]
     Dates: start: 20031031, end: 20040323
  5. ZYLORIC [Concomitant]
  6. KALIUM [Concomitant]
  7. AMPHO-MORONAL [Concomitant]
  8. RADIOTHERAPY [Concomitant]

REACTIONS (6)
  - ANAEMIA [None]
  - DEEP VEIN THROMBOSIS [None]
  - LEUKOPENIA [None]
  - NEUROPATHY [None]
  - NEUTROPENIA [None]
  - THROMBOPHLEBITIS SUPERFICIAL [None]
